FAERS Safety Report 7092503-9 (Version None)
Quarter: 2010Q4

REPORT INFORMATION
  Report Type: 
  Country: None (occurrence: None)
  Receive Date: 20101108
  Receipt Date: 20101108
  Transmission Date: 20110411
  Serious: No
  Sender: FDA-Public Use
  Company Number: None

PATIENT
  Age: 9 Year
  Sex: Male
  Weight: 56.6996 kg

DRUGS (3)
  1. ABILIFY [Suspect]
     Indication: AUTISM
     Dosage: 15 MG. 1/2 TAB 1 TIME DAILY PO
     Route: 048
     Dates: start: 20070924, end: 20100518
  2. ABILIFY [Suspect]
     Indication: IRRITABILITY
     Dosage: 15 MG. 1/2 TAB 1 TIME DAILY PO
     Route: 048
     Dates: start: 20070924, end: 20100518
  3. VYVANSE [Concomitant]

REACTIONS (3)
  - BIPOLAR DISORDER [None]
  - MANIA [None]
  - TARDIVE DYSKINESIA [None]
